FAERS Safety Report 15464660 (Version 1)
Quarter: 2018Q4

REPORT INFORMATION
  Report Type: Report from Study
  Country: None (occurrence: US)
  Receive Date: 20181004
  Receipt Date: 20181004
  Transmission Date: 20190204
  Serious: Yes (Other)
  Sender: FDA-Public Use
  Company Number: US-ABBVIE-18K-163-2502951-00

PATIENT
  Age: 38 Year
  Sex: Female

DRUGS (1)
  1. HUMIRA [Suspect]
     Active Substance: ADALIMUMAB
     Indication: PSORIASIS
     Route: 058
     Dates: start: 20180914

REACTIONS (11)
  - Aphasia [Unknown]
  - Ventriculo-peritoneal shunt [Unknown]
  - Post procedural complication [Unknown]
  - Gait disturbance [Unknown]
  - Hypoaesthesia [Unknown]
  - Transient ischaemic attack [Unknown]
  - Vision blurred [Unknown]
  - Headache [Unknown]
  - Device occlusion [Recovered/Resolved]
  - Fatigue [Unknown]
  - Intracranial pressure increased [Unknown]

NARRATIVE: CASE EVENT DATE: 201809
